FAERS Safety Report 25707377 (Version 1)
Quarter: 2025Q3

REPORT INFORMATION
  Report Type: Report from Study
  Country: IN (occurrence: IN)
  Receive Date: 20250820
  Receipt Date: 20250820
  Transmission Date: 20251021
  Serious: Yes (Other)
  Sender: NOVARTIS
  Company Number: IN-002147023-NVSC2025IN131109

PATIENT
  Age: 67 Year
  Sex: Female

DRUGS (2)
  1. RIBOCICLIB [Suspect]
     Active Substance: RIBOCICLIB
     Indication: Breast cancer metastatic
     Dosage: 400 MG, QD
     Route: 048
     Dates: start: 20250510
  2. RIBOCICLIB [Suspect]
     Active Substance: RIBOCICLIB
     Indication: HER2 positive breast cancer
     Dosage: 200 MG, BID (3 WEEKS ON AND 1 WEEK OFF AS AN INITIAL THERAPY)
     Route: 048

REACTIONS (10)
  - Mitral valve incompetence [Unknown]
  - Tricuspid valve incompetence [Unknown]
  - Left ventricular dysfunction [Unknown]
  - Aortic valve sclerosis [Unknown]
  - Haemoglobin abnormal [Unknown]
  - Full blood count abnormal [Unknown]
  - Platelet count abnormal [Unknown]
  - Neutrophil count abnormal [Unknown]
  - Blood urea abnormal [Unknown]
  - Blood creatine abnormal [Unknown]

NARRATIVE: CASE EVENT DATE: 20250728
